FAERS Safety Report 21232683 (Version 1)
Quarter: 2022Q3

REPORT INFORMATION
  Report Type: Spontaneous
  Country: US (occurrence: US)
  Receive Date: 20220819
  Receipt Date: 20220819
  Transmission Date: 20221027
  Serious: No
  Sender: FDA-Public Use
  Company Number: US-BAUSCH-BL-2022-020098

PATIENT
  Sex: Female

DRUGS (2)
  1. ATIVAN [Interacting]
     Active Substance: LORAZEPAM
     Indication: Product used for unknown indication
     Route: 065
  2. PAXLOVID [Suspect]
     Active Substance: NIRMATRELVIR\RITONAVIR
     Indication: Product used for unknown indication
     Route: 065

REACTIONS (4)
  - Sleep deficit [Unknown]
  - Heart rate increased [Unknown]
  - Tremor [Unknown]
  - Drug interaction [Unknown]
